FAERS Safety Report 10071102 (Version 1)
Quarter: 2014Q2

REPORT INFORMATION
  Report Type: Spontaneous
  Country: AT (occurrence: AT)
  Receive Date: 20140410
  Receipt Date: 20140410
  Transmission Date: 20141212
  Serious: Yes (Hospitalization)
  Sender: FDA-Public Use
  Company Number: AT-JNJFOC-20140404297

PATIENT
  Sex: Female

DRUGS (4)
  1. YONDELIS [Suspect]
     Indication: OVARIAN CANCER
     Route: 042
     Dates: start: 20140115
  2. YONDELIS [Suspect]
     Indication: OVARIAN CANCER
     Dosage: LOWER DOSE
     Route: 042
  3. CAELYX [Suspect]
     Indication: OVARIAN CANCER
     Route: 042
     Dates: start: 20140115
  4. CAELYX [Suspect]
     Indication: OVARIAN CANCER
     Dosage: LOWER DOSE
     Route: 042

REACTIONS (3)
  - Confusional state [Unknown]
  - Circulatory collapse [Unknown]
  - Fatigue [Unknown]
